FAERS Safety Report 4921244-6 (Version None)
Quarter: 2006Q1

REPORT INFORMATION
  Report Type: 
  Country: None (occurrence: None)
  Receive Date: 20060222
  Receipt Date: 20060222
  Transmission Date: 20060701
  Serious: Yes (Life-Threatening)
  Sender: FDA-Public Use
  Company Number: None

PATIENT
  Sex: Female

DRUGS (2)
  1. CEFAZOLIN [Suspect]
     Indication: PROPHYLAXIS
     Dosage: 2G  ONCE   IV DRIP
     Route: 041
     Dates: start: 20041107, end: 20041107
  2. CEFAZOLIN [Suspect]
     Indication: RETAINED PLACENTA OR MEMBRANES
     Dosage: 2G  ONCE   IV DRIP
     Route: 041
     Dates: start: 20041107, end: 20041107

REACTIONS (5)
  - ANAPHYLACTIC REACTION [None]
  - DYSPNOEA [None]
  - PROCEDURAL COMPLICATION [None]
  - PRURITUS [None]
  - TACHYCARDIA [None]
